FAERS Safety Report 15284961 (Version 2)
Quarter: 2020Q3

REPORT INFORMATION
  Report Type: Spontaneous
  Country: US (occurrence: US)
  Receive Date: 20180816
  Receipt Date: 20200925
  Transmission Date: 20201102
  Serious: Yes (Other)
  Sender: FDA-Public Use
  Company Number: US-IPSEN BIOPHARMACEUTICALS, INC.-2018-11782

PATIENT
  Sex: Male

DRUGS (1)
  1. MECASERMIN [Suspect]
     Active Substance: MECASERMIN
     Indication: PRIMARY INSULIN LIKE GROWTH FACTOR-1 DEFICIENCY
     Route: 065

REACTIONS (8)
  - Obesity [Unknown]
  - Tonsillar hypertrophy [Unknown]
  - Sleep apnoea syndrome [Unknown]
  - Increased appetite [Unknown]
  - Product supply issue [Unknown]
  - Acanthosis nigricans [Unknown]
  - Blood insulin increased [Unknown]
  - Therapeutic response decreased [Unknown]
